FAERS Safety Report 9133236 (Version 1)
Quarter: 2013Q1

REPORT INFORMATION
  Report Type: Spontaneous
  Country: GB (occurrence: GB)
  Receive Date: 20130301
  Receipt Date: 20130301
  Transmission Date: 20140127
  Serious: Yes (Hospitalization, Other)
  Sender: FDA-Public Use
  Company Number: GB-B.I. PHARMACEUTICALS,INC./RIDGEFIELD-2013-UK-00107UK

PATIENT
  Sex: Male
  Weight: 85 kg

DRUGS (12)
  1. PRADAXA [Suspect]
     Indication: ATRIAL FIBRILLATION
     Dosage: 220 MG
     Route: 048
     Dates: start: 20121006, end: 20130106
  2. PRADAXA [Suspect]
     Indication: CEREBROVASCULAR ACCIDENT PROPHYLAXIS
  3. CALCEOS [Concomitant]
  4. CO-AMILOFRUSE [Concomitant]
  5. CO-CODAMOL [Concomitant]
  6. EPILIM CHRONO [Concomitant]
     Dosage: 2 G
  7. ISOSORBIDE MONONITRATE [Concomitant]
     Dosage: 40 MG
  8. PARACETAMOL [Concomitant]
  9. PENTASA [Concomitant]
     Dosage: 4 G
  10. PREDNISOLONE [Concomitant]
     Dosage: 30 MG
  11. SIMVASTATIN [Concomitant]
     Dosage: 40 MG
  12. TOLTERODINE [Concomitant]
     Dosage: 4 MG

REACTIONS (9)
  - Sepsis [Unknown]
  - Pneumonia [Unknown]
  - Coagulation test abnormal [Not Recovered/Not Resolved]
  - Activated partial thromboplastin time prolonged [Unknown]
  - International normalised ratio abnormal [Unknown]
  - Prothrombin time abnormal [Unknown]
  - Dyspnoea [Unknown]
  - Platelet count decreased [Not Recovered/Not Resolved]
  - Platelet aggregation decreased [Unknown]
